FAERS Safety Report 4636341-2 (Version None)
Quarter: 2005Q2

REPORT INFORMATION
  Report Type: 
  Country: None (occurrence: None)
  Receive Date: 20050415
  Receipt Date: 20041119
  Transmission Date: 20051028
  Serious: Yes (Hospitalization)
  Sender: FDA-Public Use
  Company Number: US-BRISTOL-MYERS SQUIBB COMPANY-12771069

PATIENT
  Age: 49 Year
  Sex: Female

DRUGS (2)
  1. CARBOPLATIN [Suspect]
     Indication: OVARIAN CANCER
     Dosage: ^PRIOR TREATMENT WITH CARBOPLATIN - HAD 8 CYCLES PREVIOUSLY^
     Route: 042
     Dates: start: 20041119, end: 20041119
  2. DECADRON [Concomitant]
     Dosage: 30 MINUTES PRIOR TO CARBOPLATIN
     Route: 042

REACTIONS (1)
  - ADVERSE DRUG REACTION [None]
